FAERS Safety Report 10376552 (Version 1)
Quarter: 2014Q3

REPORT INFORMATION
  Report Type: Spontaneous
  Country: US (occurrence: US)
  Receive Date: 20140811
  Receipt Date: 20140811
  Transmission Date: 20150326
  Serious: No
  Sender: FDA-Public Use
  Company Number: US-JNJFOC-20140711535

PATIENT
  Sex: Male
  Weight: 169.19 kg

DRUGS (1)
  1. INVEGA SUSTENNA [Suspect]
     Active Substance: PALIPERIDONE PALMITATE
     Indication: PRODUCT USED FOR UNKNOWN INDICATION
     Route: 030
     Dates: end: 20140106

REACTIONS (3)
  - Treatment noncompliance [Unknown]
  - Fear of injection [Unknown]
  - Product packaging issue [Unknown]

NARRATIVE: CASE EVENT DATE: 2014
